FAERS Safety Report 19918818 (Version 1)
Quarter: 2021Q4

REPORT INFORMATION
  Report Type: Report from Study
  Country: IT (occurrence: IT)
  Receive Date: 20211005
  Receipt Date: 20211005
  Transmission Date: 20220303
  Serious: Yes (Other)
  Sender: FDA-Public Use
  Company Number: IT-ACCORD-240518

PATIENT
  Age: 46 Year
  Sex: Female

DRUGS (2)
  1. CAPECITABINE [Suspect]
     Active Substance: CAPECITABINE
     Indication: Breast cancer metastatic
  2. LAPATINIB [Suspect]
     Active Substance: LAPATINIB
     Indication: Breast cancer metastatic

REACTIONS (4)
  - Asthenia [Recovering/Resolving]
  - Stomatitis [Recovering/Resolving]
  - Vomiting [Recovering/Resolving]
  - Mucosal inflammation [Recovering/Resolving]
